FAERS Safety Report 21981327 (Version 1)
Quarter: 2023Q1

REPORT INFORMATION
  Report Type: Spontaneous
  Country: US (occurrence: US)
  Receive Date: 20230211
  Receipt Date: 20230211
  Transmission Date: 20230417
  Serious: No
  Sender: FDA-Public Use
  Company Number: US-ELI_LILLY_AND_COMPANY-US202302003858

PATIENT
  Sex: Male

DRUGS (2)
  1. BASAGLAR [Suspect]
     Active Substance: INSULIN GLARGINE
     Indication: Diabetes mellitus
     Dosage: 12 U, EACH MORNING
     Route: 058
  2. BASAGLAR [Suspect]
     Active Substance: INSULIN GLARGINE
     Dosage: 12 U, EACH EVENING
     Route: 058

REACTIONS (2)
  - Blood glucose increased [Unknown]
  - Inappropriate schedule of product administration [Unknown]
